FAERS Safety Report 14755408 (Version 1)
Quarter: 2018Q2

REPORT INFORMATION
  Report Type: Spontaneous
  Country: ES (occurrence: ES)
  Receive Date: 20180413
  Receipt Date: 20180413
  Transmission Date: 20180711
  Serious: Yes (Other)
  Sender: FDA-Public Use
  Company Number: ES-CIPLA LTD.-2018ES15103

PATIENT

DRUGS (2)
  1. DEXKETOPROFENO /01363801/ [Interacting]
     Active Substance: DEXKETOPROFEN
     Indication: BACK PAIN
     Dosage: 25 MG, AS NECESSARY
     Route: 048
     Dates: start: 20170704, end: 20180303
  2. NAPROXEN. [Suspect]
     Active Substance: NAPROXEN
     Indication: BACK PAIN
     Dosage: 550 MG, DAILY
     Route: 048
     Dates: start: 20180122, end: 20180303

REACTIONS (3)
  - Upper gastrointestinal haemorrhage [Recovered/Resolved]
  - Gastritis erosive [Recovering/Resolving]
  - Anaemia [Recovering/Resolving]

NARRATIVE: CASE EVENT DATE: 20180221
